FAERS Safety Report 4575346-7 (Version None)
Quarter: 2005Q1

REPORT INFORMATION
  Report Type: 
  Country: None (occurrence: None)
  Receive Date: 20050127
  Receipt Date: 20050127
  Transmission Date: 20050727
  Serious: No
  Sender: FDA-Public Use
  Company Number: None

PATIENT
  Sex: Male
  Weight: 109.3169 kg

DRUGS (12)
  1. PROPOFOL [Suspect]
     Indication: ANAESTHESIA
     Dosage: PROPOFOL 100 MG IV
     Route: 042
     Dates: start: 20050126
  2. PROTONIX [Concomitant]
  3. BENAZEPRIL HCL [Concomitant]
  4. TRILEPTAL [Concomitant]
  5. ENPOWER PLUS [Concomitant]
  6. OMEGA BRITE [Concomitant]
  7. GLIPIZIDE [Concomitant]
  8. CHLORAL HYDRATE [Concomitant]
  9. HYDROXYZINE [Concomitant]
  10. MILK OF MAGNESIA [Concomitant]
  11. SIMETHICONE [Concomitant]
  12. ROBINOL [Concomitant]

REACTIONS (2)
  - AGITATION [None]
  - DRUG INEFFECTIVE [None]
